FAERS Safety Report 8435336-0 (Version None)
Quarter: 2012Q2

REPORT INFORMATION
  Report Type: 
  Country: None (occurrence: None)
  Receive Date: 20120608
  Receipt Date: 20120608
  Transmission Date: 20120825
  Serious: Yes (Hospitalization)
  Sender: FDA-Public Use
  Company Number: None

PATIENT
  Sex: Female
  Weight: 48.2 kg

DRUGS (2)
  1. ERLOTINIB HYDROCHLORIDE [Suspect]
     Indication: NON-SMALL CELL LUNG CANCER
     Dosage: 150MG, DAYS 2-17 OF 21D CYC, PO
     Route: 048
     Dates: start: 20120507
  2. PEMETREXED [Suspect]
     Indication: NON-SMALL CELL LUNG CANCER
     Dosage: 500MG/M2, EVERY 3 WEEKS, IV
     Route: 042
     Dates: start: 20120516, end: 20120516

REACTIONS (3)
  - ASTHENIA [None]
  - MENTAL STATUS CHANGES [None]
  - LUNG INFILTRATION [None]
